FAERS Safety Report 20150162 (Version 1)
Quarter: 2021Q4

REPORT INFORMATION
  Report Type: Spontaneous
  Country: US (occurrence: US)
  Receive Date: 20211206
  Receipt Date: 20211206
  Transmission Date: 20220303
  Serious: No
  Sender: FDA-Public Use
  Company Number: US-BEH-2021139059

PATIENT
  Age: 55 Year
  Sex: Female
  Weight: 57.6 kg

DRUGS (2)
  1. PRIVIGEN [Suspect]
     Active Substance: HUMAN IMMUNOGLOBULIN G
     Indication: Immunodeficiency common variable
     Dosage: 70 GRAM, QMT
     Route: 041
  2. PRIVIGEN [Suspect]
     Active Substance: HUMAN IMMUNOGLOBULIN G
     Dosage: 40 GRAM, QMT
     Route: 041

REACTIONS (5)
  - Rash [Unknown]
  - Urticaria [Unknown]
  - Flushing [Unknown]
  - Pruritus [Unknown]
  - Pain [Unknown]
